FAERS Safety Report 9518767 (Version 2)
Quarter: 2013Q3

REPORT INFORMATION
  Report Type: Spontaneous
  Country: KR (occurrence: KR)
  Receive Date: 20130912
  Receipt Date: 20130927
  Transmission Date: 20140515
  Serious: Yes (Life-Threatening, Other)
  Sender: FDA-Public Use
  Company Number: KR-ASTRAZENECA-2013SE68101

PATIENT
  Age: 68 Year
  Sex: Male

DRUGS (12)
  1. BRILINTA [Suspect]
     Indication: ACUTE MYOCARDIAL INFARCTION
     Route: 048
     Dates: start: 20130830, end: 20130906
  2. ASPIRIN [Concomitant]
     Indication: ACUTE MYOCARDIAL INFARCTION
     Route: 048
     Dates: start: 20130830
  3. ATORVASTATIN [Concomitant]
     Indication: ACUTE MYOCARDIAL INFARCTION
     Route: 048
     Dates: start: 20130830
  4. BISOPROLOL [Concomitant]
     Indication: ACUTE MYOCARDIAL INFARCTION
     Route: 048
     Dates: start: 20130902
  5. CEFTRIAXONE [Concomitant]
     Indication: PNEUMONIA
     Route: 042
     Dates: start: 20130901, end: 20130902
  6. LEVOFLOXACIN [Concomitant]
     Indication: PNEUMONIA
     Route: 042
     Dates: start: 20130903, end: 20130917
  7. ESOMEPRAZOLE [Concomitant]
     Indication: HAEMORRHAGE PROPHYLAXIS
     Route: 048
     Dates: start: 20130901
  8. FUROSEMIDE [Concomitant]
     Indication: PULMONARY CONGESTION
     Route: 048
     Dates: start: 20130901, end: 20130903
  9. SPIRONOLACTONE [Concomitant]
     Indication: PULMONARY CONGESTION
     Route: 048
     Dates: start: 20130901, end: 20130903
  10. PIPERACILLIN-TAZOBACTAM [Concomitant]
     Indication: PNEUMONIA
     Route: 042
     Dates: start: 20130903, end: 20130917
  11. RAMIPRIL [Concomitant]
     Indication: ACUTE MYOCARDIAL INFARCTION
     Route: 048
     Dates: start: 20130830
  12. ENOXAPARIN [Concomitant]
     Indication: ACUTE MYOCARDIAL INFARCTION
     Route: 042
     Dates: start: 20130830, end: 20130830

REACTIONS (2)
  - Cardiac arrest [Recovered/Resolved]
  - Haemoptysis [Recovered/Resolved]
